FAERS Safety Report 8924654 (Version 1)
Quarter: 2012Q4

REPORT INFORMATION
  Report Type: 
  Country: US (occurrence: US)
  Receive Date: 20121126
  Receipt Date: 20121126
  Transmission Date: 20130627
  Serious: No
  Sender: FDA-Public Use
  Company Number: US-BRISTOL-MYERS SQUIBB COMPANY-17027764

PATIENT
  Age: 60 Year
  Sex: Female

DRUGS (3)
  1. KOMBIGLYZE XR [Suspect]
     Dosage: 1df:5/500
     Dates: start: 20120719
  2. METFORMIN HCL [Suspect]
  3. ONGLYZA TABS [Suspect]

REACTIONS (1)
  - Diarrhoea [Unknown]
